FAERS Safety Report 4332524-X (Version None)
Quarter: 2004Q2

REPORT INFORMATION
  Report Type: 
  Country: None (occurrence: None)
  Receive Date: 20040401
  Receipt Date: 20040317
  Transmission Date: 20050107
  Serious: Yes (Hospitalization)
  Sender: FDA-Public Use
  Company Number: DE-SHR-04-020802

PATIENT
  Age: 47 Year
  Sex: Female
  Weight: 68.8 kg

DRUGS (10)
  1. BETASERON [Suspect]
     Indication: MULTIPLE SCLEROSIS
     Dosage: 8 MIU, EVERY 2 D, SUBCUTANEOUS
     Route: 058
     Dates: start: 19971101, end: 20040205
  2. CARBAMAZEPINE [Concomitant]
  3. ATORVASTATIN (ATORVASTATIN) [Concomitant]
  4. NEXIUM [Concomitant]
  5. GLYBURIDE [Concomitant]
  6. URSO FALK [Concomitant]
  7. ESPUMISAN (DIMETICONE) [Concomitant]
  8. ALNA (TAMSULOSIN HYDROCHLORIDE) [Concomitant]
  9. CIPRAMIL (CITALOPRAM HYDROBROMIDE) [Concomitant]
  10. TOREM   /GFR/ (TORASEMIDE) [Concomitant]

REACTIONS (3)
  - HEPATIC CIRRHOSIS [None]
  - HEPATIC FIBROSIS [None]
  - PORTAL HYPERTENSION [None]
